FAERS Safety Report 4551823-X (Version None)
Quarter: 2005Q1

REPORT INFORMATION
  Report Type: 
  Country: None (occurrence: None)
  Receive Date: 20050111
  Receipt Date: 20041227
  Transmission Date: 20050727
  Serious: Yes (Death, Hospitalization, Disabling)
  Sender: FDA-Public Use
  Company Number: 2004-0007126

PATIENT
  Age: 53 Year
  Sex: Male

DRUGS (12)
  1. VIREAD [Suspect]
     Indication: HIV INFECTION
     Dosage: 300 MG, 1 IN 1 D, ORAL
     Route: 048
     Dates: start: 20040419, end: 20040517
  2. STOCRIN (EFAVIRENZ) [Suspect]
     Indication: HIV INFECTION
     Dosage: 1 IN 1 D
     Dates: start: 20040419, end: 20040517
  3. EPIVIR [Suspect]
     Indication: HIV INFECTION
     Dosage: 1 IN 1 D
     Dates: start: 20040419, end: 20040517
  4. RIFABUTIN (RIFABUTIN) [Suspect]
     Indication: DISSEMINATED TUBERCULOSIS
     Dosage: 3 IN 1 D, ORAL
     Route: 048
     Dates: start: 20040430, end: 20040517
  5. ISONIAZID [Suspect]
     Indication: DISSEMINATED TUBERCULOSIS
     Dosage: 3 IN 1 D, ORAL
     Route: 048
     Dates: start: 20040430, end: 20040517
  6. ETHAMBUTOL HCL [Suspect]
     Indication: DISSEMINATED TUBERCULOSIS
     Dosage: 3 IN 1 D, ORAL
     Route: 048
     Dates: start: 20040319, end: 20040517
  7. PYRAZINAMIDE [Suspect]
     Indication: DISSEMINATED TUBERCULOSIS
     Dosage: 3 IN 1 D, ORAL
     Route: 048
     Dates: start: 20040430, end: 20040517
  8. LOXONIN (LOXOPROFEN SODIUM) [Suspect]
     Indication: SCIATICA
     Dosage: 3 IN 1 D, ORAL
     Route: 048
     Dates: start: 20040414, end: 20040517
  9. ALLOPURINOL [Suspect]
     Indication: HYPERURICAEMIA
     Dosage: 2 IN 1 D, ORAL
     Route: 048
     Dates: start: 20040511, end: 20040517
  10. EUGLUCON (GLIBENCLAMIDE) [Suspect]
     Indication: DIABETES MELLITUS
     Dosage: 1 IN 1 D, ORAL
     Route: 048
     Dates: start: 20040224, end: 20040517
  11. BACTRIM [Suspect]
     Indication: INFECTION PROPHYLAXIS
     Dosage: 1 IN 1 D, ORAL
     Route: 048
     Dates: start: 20040218, end: 20040517
  12. AMOXICILLIN TRIHYDRATE [Concomitant]

REACTIONS (13)
  - BRAIN ABSCESS [None]
  - CONDITION AGGRAVATED [None]
  - DEPRESSED LEVEL OF CONSCIOUSNESS [None]
  - DIALYSIS [None]
  - DISSEMINATED TUBERCULOSIS [None]
  - DRUG ERUPTION [None]
  - DRUG INEFFECTIVE [None]
  - METABOLIC ACIDOSIS [None]
  - MULTI-ORGAN FAILURE [None]
  - NEPHROPATHY [None]
  - RENAL FAILURE ACUTE [None]
  - RESPIRATION ABNORMAL [None]
  - TACHYCARDIA [None]
